FAERS Safety Report 4381164-5 (Version None)
Quarter: 2004Q2

REPORT INFORMATION
  Report Type: 
  Country: None (occurrence: None)
  Receive Date: 20040621
  Receipt Date: 20040610
  Transmission Date: 20050107
  Serious: Yes (Other)
  Sender: FDA-Public Use
  Company Number: PHNR2004AU01037

PATIENT
  Age: 41 Year
  Sex: Female

DRUGS (12)
  1. FAMVIR [Suspect]
     Indication: HERPES SIMPLEX
     Dosage: 125 MG, QD
     Route: 048
     Dates: start: 20040602, end: 20040602
  2. FAMVIR [Suspect]
     Dosage: 125 MG, TID
     Route: 048
     Dates: start: 20040603, end: 20040603
  3. FAMVIR [Suspect]
     Dosage: 125 MG, TID
     Route: 048
     Dates: start: 20040604, end: 20040604
  4. FAMVIR [Suspect]
     Dosage: 125 MG, BID
     Route: 048
     Dates: start: 20040605, end: 20040605
  5. FAMVIR [Suspect]
     Dosage: 125 MG, TID
     Route: 048
     Dates: start: 20040606, end: 20040606
  6. FAMVIR [Suspect]
     Dosage: 125 MG, BID
     Route: 048
     Dates: start: 20040607, end: 20040607
  7. FAMVIR [Suspect]
     Dosage: 125 MG, BID
     Route: 048
     Dates: start: 20040608, end: 20040608
  8. FAMVIR [Suspect]
     Dosage: 125 MG, QD
     Route: 048
     Dates: start: 20040609, end: 20040609
  9. APRINOX [Concomitant]
     Dosage: 2.5 MG, QD
     Route: 048
  10. VITAMIN C [Concomitant]
  11. GARLIC [Concomitant]
  12. ECHINACEA [Concomitant]

REACTIONS (2)
  - CONFUSIONAL STATE [None]
  - DEPRESSION [None]
